FAERS Safety Report 7751363-0 (Version None)
Quarter: 2011Q3

REPORT INFORMATION
  Report Type: 
  Country: None (occurrence: None)
  Receive Date: 20110914
  Receipt Date: 20100802
  Transmission Date: 20111222
  Serious: No
  Sender: FDA-Public Use
  Company Number: PHHY2010TW92381

PATIENT

DRUGS (2)
  1. TASIGNA [Suspect]
     Dosage: 600 MG, (400 MG AM AND 200 MG PM)
     Route: 048
     Dates: start: 20100731
  2. TASIGNA [Suspect]
     Dosage: 200 MG, UNK
     Dates: start: 20100806

REACTIONS (3)
  - HYPERSENSITIVITY [None]
  - RASH [None]
  - PRURITUS [None]
